FAERS Safety Report 11444632 (Version 1)
Quarter: 2015Q3

REPORT INFORMATION
  Report Type: Spontaneous
  Country: US (occurrence: US)
  Receive Date: 20150902
  Receipt Date: 20150902
  Transmission Date: 20151125
  Serious: No
  Sender: FDA-Public Use
  Company Number: US-009507513-1509USA000665

PATIENT
  Sex: Female
  Weight: 109.3 kg

DRUGS (1)
  1. NEXPLANON [Suspect]
     Active Substance: ETONOGESTREL
     Dosage: UNKNOWN
     Route: 059
     Dates: start: 20150318, end: 20150811

REACTIONS (2)
  - Product quality issue [Unknown]
  - Device breakage [Unknown]

NARRATIVE: CASE EVENT DATE: 2015
